FAERS Safety Report 6132061-6 (Version None)
Quarter: 2009Q1

REPORT INFORMATION
  Report Type: 
  Country: None (occurrence: None)
  Receive Date: 20090325
  Receipt Date: 20090313
  Transmission Date: 20090719
  Serious: Yes (Hospitalization)
  Sender: FDA-Public Use
  Company Number: AU-PFIZER INC-2009173238

PATIENT

DRUGS (3)
  1. ZELDOX [Suspect]
     Indication: PSYCHOTIC DISORDER
     Dosage: 20 MG, 2X/DAY
     Dates: start: 20081001
  2. CIPRAMIL [Concomitant]
     Indication: DEPRESSION
     Dosage: 60 MG, 1X/DAY
     Route: 048
  3. OROXINE [Concomitant]

REACTIONS (6)
  - ACTIVITIES OF DAILY LIVING IMPAIRED [None]
  - DEPRESSION [None]
  - HYPOMANIA [None]
  - MALAISE [None]
  - SOMNOLENCE [None]
  - SUICIDAL IDEATION [None]
